FAERS Safety Report 13676154 (Version 2)
Quarter: 2017Q3

REPORT INFORMATION
  Report Type: Spontaneous
  Country: AU (occurrence: AU)
  Receive Date: 20170622
  Receipt Date: 20170725
  Transmission Date: 20171127
  Serious: Yes (Hospitalization)
  Sender: FDA-Public Use
  Company Number: AU-ROCHE-1949858

PATIENT

DRUGS (3)
  1. BACLOFEN. [Suspect]
     Active Substance: BACLOFEN
     Indication: PRODUCT USED FOR UNKNOWN INDICATION
     Route: 065
  2. VALIUM [Suspect]
     Active Substance: DIAZEPAM
     Indication: ANXIETY
     Route: 065
  3. VALIUM [Suspect]
     Active Substance: DIAZEPAM
     Indication: BRUXISM

REACTIONS (6)
  - Suspected product tampering [Unknown]
  - Drug ineffective [Unknown]
  - Seizure [Unknown]
  - Overdose [Unknown]
  - Micturition urgency [Unknown]
  - Off label use [Unknown]
